FAERS Safety Report 7498296-5 (Version None)
Quarter: 2011Q2

REPORT INFORMATION
  Report Type: 
  Country: None (occurrence: None)
  Receive Date: 20110524
  Receipt Date: 20110425
  Transmission Date: 20111010
  Serious: Yes (Hospitalization)
  Sender: FDA-Public Use
  Company Number: US-BAYER-2010-006127

PATIENT
  Age: 32 Year
  Sex: Female
  Weight: 68.027 kg

DRUGS (1)
  1. YASMIN [Suspect]
     Indication: PRODUCT USED FOR UNKNOWN INDICATION
     Dosage: UNK
     Route: 048
     Dates: start: 20070701, end: 20090801

REACTIONS (3)
  - ABDOMINAL PAIN [None]
  - CHOLELITHIASIS [None]
  - CHOLECYSTITIS [None]
